FAERS Safety Report 7065569-X (Version None)
Quarter: 2010Q4

REPORT INFORMATION
  Report Type: 
  Country: None (occurrence: None)
  Receive Date: 20101027
  Receipt Date: 20101018
  Transmission Date: 20110411
  Serious: Yes (Other)
  Sender: FDA-Public Use
  Company Number: JP-BRISTOL-MYERS SQUIBB COMPANY-15349418

PATIENT
  Sex: Female
  Weight: 2 kg

DRUGS (1)
  1. ABILIFY [Suspect]
     Route: 064
     Dates: start: 20080411, end: 20100808

REACTIONS (2)
  - NEONATAL RESPIRATORY FAILURE [None]
  - PREGNANCY [None]
